FAERS Safety Report 4444145-9 (Version None)
Quarter: 2004Q3

REPORT INFORMATION
  Report Type: 
  Country: None (occurrence: None)
  Receive Date: 20040812
  Receipt Date: 20030702
  Transmission Date: 20050211
  Serious: Yes (Hospitalization, Other)
  Sender: FDA-Public Use
  Company Number: US_030795847

PATIENT
  Age: 56 Year
  Sex: Female
  Weight: 60 kg

DRUGS (7)
  1. NPH ILETIN I (BEEF-PORK) [Suspect]
     Indication: DIABETES MELLITUS
     Dates: start: 19700101, end: 19800101
  2. ILETIN [Suspect]
     Indication: DIABETES MELLITUS
     Dates: start: 19700101, end: 19800101
  3. HUMULIN N [Suspect]
     Indication: DIABETES MELLITUS
     Dates: start: 19810101, end: 19980101
  4. HUMULIN L [Suspect]
     Indication: DIABETES MELLITUS
     Dates: start: 19800101, end: 19810101
  5. HUMULIN R [Suspect]
     Indication: DIABETES MELLITUS
     Dates: start: 19810101, end: 20030601
  6. HUMULIN 70/30 [Suspect]
     Indication: DIABETES MELLITUS
     Dosage: 27 U/DAY
     Dates: start: 19980101
  7. LANTUS [Concomitant]

REACTIONS (7)
  - ABDOMINAL ADHESIONS [None]
  - AMNESIA [None]
  - BRAIN NEOPLASM [None]
  - HYPOGLYCAEMIA [None]
  - NEUROPATHY [None]
  - RETINAL TEAR [None]
  - THROMBOSIS [None]
